FAERS Safety Report 9966486 (Version 1)
Quarter: 2014Q1

REPORT INFORMATION
  Report Type: Report from Study
  Country: US (occurrence: US)
  Receive Date: 20140305
  Receipt Date: 20140305
  Transmission Date: 20141002
  Serious: No
  Sender: FDA-Public Use
  Company Number: US-ABBVIE-13P-163-1119922-00

PATIENT
  Age: 56 Year
  Sex: Female
  Weight: 102.15 kg

DRUGS (15)
  1. HUMIRA [Suspect]
     Indication: PSORIASIS
     Route: 058
     Dates: start: 20120830, end: 201212
  2. HUMIRA [Suspect]
     Route: 058
     Dates: start: 20130712
  3. SYNTHROID [Concomitant]
     Indication: PRODUCT USED FOR UNKNOWN INDICATION
  4. DIOVAN HCT [Concomitant]
     Indication: PRODUCT USED FOR UNKNOWN INDICATION
  5. LEXAPRO [Concomitant]
     Indication: PRODUCT USED FOR UNKNOWN INDICATION
  6. SOMA [Concomitant]
     Indication: PRODUCT USED FOR UNKNOWN INDICATION
  7. METFORMIN [Concomitant]
     Indication: PRODUCT USED FOR UNKNOWN INDICATION
  8. LOVAZA [Concomitant]
     Indication: PRODUCT USED FOR UNKNOWN INDICATION
  9. FENOFIBRATE [Concomitant]
     Indication: PRODUCT USED FOR UNKNOWN INDICATION
  10. NADOLOL [Concomitant]
     Indication: PRODUCT USED FOR UNKNOWN INDICATION
  11. REQUIP [Concomitant]
     Indication: PRODUCT USED FOR UNKNOWN INDICATION
  12. PLAVIX [Concomitant]
     Indication: PRODUCT USED FOR UNKNOWN INDICATION
  13. VALIUM [Concomitant]
     Indication: PRODUCT USED FOR UNKNOWN INDICATION
  14. PERCOCET [Concomitant]
     Indication: PRODUCT USED FOR UNKNOWN INDICATION
  15. ASA [Concomitant]
     Indication: PRODUCT USED FOR UNKNOWN INDICATION

REACTIONS (3)
  - Dry skin [Unknown]
  - Skin fissures [Unknown]
  - Skin haemorrhage [Unknown]
